FAERS Safety Report 21696649 (Version 1)
Quarter: 2022Q4

REPORT INFORMATION
  Report Type: Spontaneous
  Country: TW (occurrence: TW)
  Receive Date: 20221207
  Receipt Date: 20221207
  Transmission Date: 20230112
  Serious: Yes (Hospitalization, Other)
  Sender: FDA-Public Use
  Company Number: TW-Accord-290300

PATIENT
  Age: 28 Year
  Sex: Male

DRUGS (10)
  1. TACROLIMUS [Suspect]
     Active Substance: TACROLIMUS
     Indication: Premedication
     Dosage: THE PRESCRIBED DOSE OF FK-506 WAS INCREMENTAL INITIALLY
     Route: 048
  2. PANTOPRAZOLE [Concomitant]
     Active Substance: PANTOPRAZOLE
  3. MYCOPHENOLATE MOFETIL [Concomitant]
     Active Substance: MYCOPHENOLATE MOFETIL
     Indication: Premedication
     Route: 048
  4. PREDNISOLONE [Concomitant]
     Active Substance: PREDNISOLONE
  5. CARVEDILOL [Concomitant]
     Active Substance: CARVEDILOL
  6. CEFTRIAXONE [Concomitant]
     Active Substance: CEFTRIAXONE
  7. AMLODIPINE [Concomitant]
     Active Substance: AMLODIPINE BESYLATE
  8. DOXAZOSIN [Concomitant]
     Active Substance: DOXAZOSIN MESYLATE
  9. TACROLIMUS [Suspect]
     Active Substance: TACROLIMUS
     Indication: Premedication
     Dosage: REDUCED FK-506 DOSAGE AFTER ABNORMAL LIVER FUNCTION
     Route: 048
  10. TACROLIMUS [Suspect]
     Active Substance: TACROLIMUS
     Indication: Premedication
     Dosage: THE PRESCRIBED DOSE OF FK-506 WAS INCREMENTAL INITIALLY
     Route: 048

REACTIONS (5)
  - Acute kidney injury [Recovered/Resolved]
  - Drug level above therapeutic [Recovered/Resolved]
  - Metabolic acidosis [Recovered/Resolved]
  - Hyperkalaemia [Recovered/Resolved]
  - Hypomagnesaemia [Recovered/Resolved]
